FAERS Safety Report 7421745-5 (Version None)
Quarter: 2011Q1

REPORT INFORMATION
  Report Type: 
  Country: None (occurrence: None)
  Receive Date: 20110302
  Receipt Date: 20101101
  Transmission Date: 20110831
  Serious: No
  Sender: FDA-Public Use
  Company Number: 021477

PATIENT
  Sex: Female
  Weight: 50 kg

DRUGS (4)
  1. CLARITIN [Suspect]
  2. NORTRIPTYLINE [Concomitant]
  3. CIMZIA [Suspect]
     Indication: COLITIS ULCERATIVE
     Dosage: 400 MG 1X/4 WEEKS SUBCUTANEOUS
     Route: 058
     Dates: start: 20100621
  4. CIMZIA [Suspect]
     Indication: OFF LABEL USE
     Dosage: 400 MG 1X/4 WEEKS SUBCUTANEOUS
     Route: 058
     Dates: start: 20100621

REACTIONS (8)
  - FEELING ABNORMAL [None]
  - VOMITING [None]
  - INJECTION SITE PAIN [None]
  - FEELING HOT [None]
  - PYREXIA [None]
  - OFF LABEL USE [None]
  - OROPHARYNGEAL PAIN [None]
  - HEADACHE [None]
